FAERS Safety Report 7920584-6 (Version None)
Quarter: 2011Q4

REPORT INFORMATION
  Report Type: 
  Country: None (occurrence: None)
  Receive Date: 20111117
  Receipt Date: 20111113
  Transmission Date: 20120403
  Serious: Yes (Hospitalization, Other)
  Sender: FDA-Public Use
  Company Number: PHHY2011DE84208

PATIENT
  Sex: Female

DRUGS (1)
  1. EXTAVIA [Suspect]
     Indication: MULTIPLE SCLEROSIS
     Dosage: 1 ML, QOD
     Route: 058
     Dates: start: 20110622, end: 20111018

REACTIONS (5)
  - THROAT TIGHTNESS [None]
  - PHARYNGEAL OEDEMA [None]
  - DYSPNOEA [None]
  - DYSPHAGIA [None]
  - THYROID DISORDER [None]
